FAERS Safety Report 17780436 (Version 4)
Quarter: 2021Q1

REPORT INFORMATION
  Report Type: Report from Study
  Country: CO (occurrence: CO)
  Receive Date: 20200513
  Receipt Date: 20210225
  Transmission Date: 20210419
  Serious: Yes (Hospitalization, Other)
  Sender: FDA-Public Use
  Company Number: CO-JNJFOC-20200505838

PATIENT
  Age: 65 Year
  Sex: Male
  Weight: 82 kg

DRUGS (15)
  1. AMANTADINE. [Concomitant]
     Active Substance: AMANTADINE HYDROCHLORIDE
  2. METFORMIN [Concomitant]
     Active Substance: METFORMIN HYDROCHLORIDE
  3. METOPROLOL. [Concomitant]
     Active Substance: METOPROLOL
  4. GEMFIBROZIL. [Concomitant]
     Active Substance: GEMFIBROZIL
  5. STELARA [Suspect]
     Active Substance: USTEKINUMAB
     Indication: PSORIASIS
     Route: 058
     Dates: start: 20170913
  6. ASA [Concomitant]
     Active Substance: ASPIRIN
  7. NEUROBION [PYRIDOXINE HYDROCHLORIDE;THIAMINE HYDROCHLORIDE] [Concomitant]
  8. CARBIDOPA. [Concomitant]
     Active Substance: CARBIDOPA
  9. HYDROCHLOROTHIAZIDE. [Concomitant]
     Active Substance: HYDROCHLOROTHIAZIDE
  10. STELARA [Suspect]
     Active Substance: USTEKINUMAB
     Route: 058
     Dates: start: 20190208, end: 20190513
  11. STELARA [Suspect]
     Active Substance: USTEKINUMAB
     Route: 058
     Dates: start: 20191205
  12. LOSARTAN. [Concomitant]
     Active Substance: LOSARTAN
  13. AMLODIPINE [Concomitant]
     Active Substance: AMLODIPINE BESYLATE
  14. ATORVASTATINE                      /01326101/ [Concomitant]
     Active Substance: ATORVASTATIN
     Route: 065
  15. VITAMIN C [Concomitant]
     Active Substance: ASCORBIC ACID

REACTIONS (10)
  - Blood creatine increased [Not Recovered/Not Resolved]
  - Blood potassium increased [Not Recovered/Not Resolved]
  - Kidney infection [Not Recovered/Not Resolved]
  - Ocular hyperaemia [Recovering/Resolving]
  - Thrombosis [Not Recovered/Not Resolved]
  - Chest pain [Not Recovered/Not Resolved]
  - Sciatica [Not Recovered/Not Resolved]
  - Psoriasis [Not Recovered/Not Resolved]
  - Influenza [Recovered/Resolved]
  - Weight decreased [Unknown]

NARRATIVE: CASE EVENT DATE: 20191210
